FAERS Safety Report 11023506 (Version 3)
Quarter: 2015Q2

REPORT INFORMATION
  Report Type: Spontaneous
  Country: US (occurrence: US)
  Receive Date: 20150413
  Receipt Date: 20150520
  Transmission Date: 20150821
  Serious: No
  Sender: FDA-Public Use
  Company Number: US-PFIZER INC-2015122571

PATIENT
  Age: 78 Year
  Sex: Female
  Weight: 52 kg

DRUGS (4)
  1. PREMARIN [Suspect]
     Active Substance: ESTROGENS, CONJUGATED
     Indication: OESTROGEN THERAPY
     Dosage: 1 G, THREE TIMES A WEEK
     Route: 067
  2. OMEPRAZOLE. [Concomitant]
     Active Substance: OMEPRAZOLE
     Indication: BARRETT^S OESOPHAGUS
     Dosage: 20 MG, 1X/DAY
     Route: 048
     Dates: start: 20130906
  3. PREMARIN [Suspect]
     Active Substance: ESTROGENS, CONJUGATED
     Indication: PROPHYLAXIS URINARY TRACT INFECTION
     Dosage: 10 MG, THREE TIMES A WEEK
     Route: 067
     Dates: start: 20011213
  4. LEVOTHYROXINE [Concomitant]
     Active Substance: LEVOTHYROXINE
     Indication: HYPOTHYROIDISM
     Dosage: 0.5 MG, 1X/DAY
     Route: 048
     Dates: start: 20040218

REACTIONS (2)
  - Micturition urgency [Unknown]
  - Off label use [Unknown]
